FAERS Safety Report 23386544 (Version 1)
Quarter: 2024Q1

REPORT INFORMATION
  Report Type: Spontaneous
  Country: US (occurrence: US)
  Receive Date: 20240110
  Receipt Date: 20240110
  Transmission Date: 20240409
  Serious: Yes (Life-Threatening, Hospitalization)
  Sender: FDA-Public Use
  Company Number: US-TEVA-VS-3135906

PATIENT
  Age: 64 Year

DRUGS (1)
  1. AMIODARONE [Suspect]
     Active Substance: AMIODARONE
     Indication: Atrial flutter
     Route: 065

REACTIONS (3)
  - Hypothyroidism [Recovering/Resolving]
  - Decompensated hypothyroidism [Recovering/Resolving]
  - Cardiogenic shock [Recovering/Resolving]
